FAERS Safety Report 24703274 (Version 2)
Quarter: 2024Q4

REPORT INFORMATION
  Report Type: Spontaneous
  Country: GR (occurrence: GR)
  Receive Date: 20241205
  Receipt Date: 20241210
  Transmission Date: 20250114
  Serious: Yes (Other)
  Sender: SANDOZ
  Company Number: GR-BRISTOL-MYERS SQUIBB COMPANY-2024-134645

PATIENT
  Age: 79 Year
  Sex: Male

DRUGS (15)
  1. AZACITIDINE [Suspect]
     Active Substance: AZACITIDINE
     Indication: 5q minus syndrome
     Dosage: 5 CYCLES
     Route: 065
  2. DEFERASIROX [Suspect]
     Active Substance: DEFERASIROX
     Indication: 5q minus syndrome
     Dosage: UNK
     Route: 065
  3. DEFERASIROX [Suspect]
     Active Substance: DEFERASIROX
     Dosage: UNK
     Route: 065
  4. EPOETIN ALFA [Suspect]
     Active Substance: ERYTHROPOIETIN
     Indication: 5q minus syndrome
     Route: 065
  5. FILGRASTIM [Suspect]
     Active Substance: FILGRASTIM
     Indication: 5q minus syndrome
     Dosage: UNK
     Route: 065
  6. FILGRASTIM [Suspect]
     Active Substance: FILGRASTIM
     Dosage: UNK
     Route: 065
  7. LENALIDOMIDE [Suspect]
     Active Substance: LENALIDOMIDE
     Indication: 5q minus syndrome
     Dosage: UNK
     Route: 065
  8. LENALIDOMIDE [Suspect]
     Active Substance: LENALIDOMIDE
     Indication: 5q minus syndrome
     Dosage: 1.33 MG/KG
     Route: 058
  9. DEFERASIROX [Concomitant]
     Active Substance: DEFERASIROX
     Indication: 5q minus syndrome
     Dosage: UNK
     Route: 065
  10. DEFERASIROX [Concomitant]
     Active Substance: DEFERASIROX
     Dosage: UNK
     Route: 065
  11. DEFERASIROX [Concomitant]
     Active Substance: DEFERASIROX
     Dosage: UNK
     Route: 065
  12. DEFERASIROX [Concomitant]
     Active Substance: DEFERASIROX
     Dosage: UNK
     Route: 065
  13. DEFERASIROX [Concomitant]
     Active Substance: DEFERASIROX
     Dosage: UNK
     Route: 065
  14. LUSPATERCEPT [Concomitant]
     Active Substance: LUSPATERCEPT
     Indication: 5q minus syndrome
     Dosage: 1?MG/KG, AND THE DOSE WAS INCREASED AFTER TWO 21-DAY CYCLES TO 1.33?MG/KG
     Route: 058
  15. LUSPATERCEPT [Concomitant]
     Active Substance: LUSPATERCEPT
     Dosage: 1.33 MG/KG
     Route: 058

REACTIONS (6)
  - Haematotoxicity [Recovering/Resolving]
  - Neutropenia [Recovering/Resolving]
  - Thrombocytopenia [Not Recovered/Not Resolved]
  - Anaemia [Recovering/Resolving]
  - Drug ineffective [Unknown]
  - Off label use [Unknown]
